FAERS Safety Report 5166613-7 (Version None)
Quarter: 2006Q4

REPORT INFORMATION
  Report Type: 
  Country: None (occurrence: None)
  Receive Date: 20061129
  Receipt Date: 20061116
  Transmission Date: 20070319
  Serious: No
  Sender: FDA-Public Use
  Company Number: 2006RR-04590

PATIENT
  Sex: Female

DRUGS (1)
  1. RANITIDINE [Suspect]
     Dosage: ORAL
     Route: 048
     Dates: end: 20061027

REACTIONS (2)
  - ABORTION SPONTANEOUS [None]
  - DRUG EXPOSURE DURING PREGNANCY [None]
